FAERS Safety Report 4664333-6 (Version None)
Quarter: 2005Q2

REPORT INFORMATION
  Report Type: 
  Country: None (occurrence: None)
  Receive Date: 20050518
  Receipt Date: 20050510
  Transmission Date: 20051028
  Serious: Yes (Hospitalization)
  Sender: FDA-Public Use
  Company Number: US-BRISTOL-MYERS SQUIBB COMPANY-12962643

PATIENT
  Age: 50 Year
  Sex: Female

DRUGS (7)
  1. CETUXIMAB [Suspect]
     Indication: COLORECTAL CANCER METASTATIC
     Dosage: COURSE 2. START DATE 15-MAR-05 (756 MG), 22-MAR TO 19-APR (473MGX5), 26-APR TO 03-MAY-05 (458MG)
     Route: 042
     Dates: start: 20050503, end: 20050503
  2. VERAPAMIL [Concomitant]
     Dates: start: 20041201, end: 20050201
  3. THEOPHYLLINE [Concomitant]
     Dates: start: 19950101
  4. LORATADINE [Concomitant]
     Dates: start: 20010501
  5. ZAFIRLUKAST [Concomitant]
     Dates: start: 20020101
  6. SEREVENT [Concomitant]
     Dates: start: 20030101
  7. FLUTICASONE PROPIONATE [Concomitant]
     Dosage: DOSAGE FORM = 1 SPAY
     Dates: start: 20010501

REACTIONS (10)
  - CHEST DISCOMFORT [None]
  - COLON CANCER METASTATIC [None]
  - DEHYDRATION [None]
  - DIARRHOEA [None]
  - DYSPNOEA [None]
  - ELECTROCARDIOGRAM T WAVE INVERSION [None]
  - HYPOMAGNESAEMIA [None]
  - MALIGNANT NEOPLASM PROGRESSION [None]
  - NAUSEA [None]
  - VOMITING [None]
